FAERS Safety Report 15490848 (Version 2)
Quarter: 2018Q4

REPORT INFORMATION
  Report Type: Report from Study
  Country: JP (occurrence: JP)
  Receive Date: 20181011
  Receipt Date: 20181215
  Transmission Date: 20190205
  Serious: Yes (Death, Other)
  Sender: FDA-Public Use
  Company Number: JP-AMGEN-JPNCT2018142520

PATIENT
  Age: 76 Year
  Sex: Female

DRUGS (21)
  1. HERBAL NOS [Concomitant]
     Active Substance: HERBALS
     Indication: DYSPEPSIA
     Dosage: 22.5 G, UNK
     Route: 048
     Dates: end: 20180821
  2. VOGLIBOSE [Concomitant]
     Active Substance: VOGLIBOSE
     Indication: TYPE 2 DIABETES MELLITUS
     Dosage: 0.9 MG, UNK
     Route: 048
     Dates: end: 20180821
  3. SELBEX [Concomitant]
     Active Substance: TEPRENONE
     Indication: CHRONIC GASTRITIS
     Dosage: 1500 MG
     Route: 048
     Dates: start: 20180403, end: 20180415
  4. ONEALFA [Concomitant]
     Active Substance: ALFACALCIDOL
     Indication: HYPERPARATHYROIDISM SECONDARY
     Dosage: 0.25 MUG, UNK
     Route: 048
     Dates: end: 20180821
  5. BROTIZOLAM [Concomitant]
     Active Substance: BROTIZOLAM
     Indication: INSOMNIA
     Dosage: 0.25 MG, UNK
     Route: 048
  6. EVISTA [Concomitant]
     Active Substance: RALOXIFENE HYDROCHLORIDE
     Indication: OSTEOPOROSIS POSTMENOPAUSAL
     Dosage: 60 MG, 3 TIMES/WK
     Route: 048
     Dates: end: 20180821
  7. CALTAN [Concomitant]
     Active Substance: CALCIUM CARBONATE
     Indication: HYPERPHOSPHATAEMIA
     Dosage: 500 MG, UNK
     Route: 048
     Dates: start: 20180608, end: 20180821
  8. DARBEPOETIN ALFA [Suspect]
     Active Substance: DARBEPOETIN ALFA
     Indication: MYELODYSPLASTIC SYNDROME
     Dosage: 240 MUG, QWK
     Route: 058
     Dates: start: 20180324
  9. TRAZENTA [Concomitant]
     Active Substance: LINAGLIPTIN
     Indication: TYPE 2 DIABETES MELLITUS
     Dosage: 5 MG, UNK
     Route: 048
     Dates: end: 20180821
  10. THYRADIN-S [Concomitant]
     Active Substance: LEVOTHYROXINE
     Indication: THYROIDITIS CHRONIC
     Dosage: 50 MUG, UNK
     Route: 048
     Dates: end: 20180821
  11. COCARL [Concomitant]
     Active Substance: ACETAMINOPHEN
     Indication: SPINAL COMPRESSION FRACTURE
     Dosage: 800 MG, UNK
     Route: 048
     Dates: end: 20180821
  12. REBAMIPIDE [Concomitant]
     Active Substance: REBAMIPIDE
     Indication: CHRONIC GASTRITIS
     Dosage: 300 MG
     Route: 048
     Dates: start: 20180416, end: 20180818
  13. SENNOSIDE [Concomitant]
     Active Substance: SENNOSIDES
     Indication: CONSTIPATION
     Dosage: 12 MG, UNK
     Route: 048
     Dates: start: 20180802, end: 20180821
  14. PLAVIX [Concomitant]
     Active Substance: CLOPIDOGREL BISULFATE
     Indication: CEREBRAL INFARCTION
     Dosage: 75 MG, UNK
     Route: 048
     Dates: end: 20180821
  15. LANSOPRAZOLE. [Concomitant]
     Active Substance: LANSOPRAZOLE
     Indication: GASTROOESOPHAGEAL REFLUX DISEASE
     Dosage: 30 MG, UNK
     Route: 048
  16. CEFTRIAXONE SODIUM. [Concomitant]
     Active Substance: CEFTRIAXONE SODIUM
     Indication: PNEUMONIA
     Dosage: 1 G, UNK
     Route: 065
     Dates: start: 20180816, end: 20180820
  17. HEPAFILLED [Concomitant]
     Indication: DIALYSIS
     Dosage: 1250 IU, UNK
     Route: 065
     Dates: end: 20180821
  18. GASMOTIN [Concomitant]
     Active Substance: MOSAPRIDE CITRATE
     Indication: DYSPEPSIA
     Dosage: 15 MG, UNK
     Route: 048
     Dates: end: 20180821
  19. SELBEX [Concomitant]
     Active Substance: TEPRENONE
     Indication: CHRONIC GASTRITIS
     Dosage: UNK
     Route: 048
  20. REBAMIPIDE [Concomitant]
     Active Substance: REBAMIPIDE
     Indication: CHRONIC GASTRITIS
     Dosage: UNK
     Route: 048
  21. RENAGEL [Concomitant]
     Active Substance: SEVELAMER HYDROCHLORIDE
     Indication: HYPERPHOSPHATAEMIA
     Dosage: 750 MG, UNK
     Route: 048
     Dates: end: 20180808

REACTIONS (4)
  - Blood pressure increased [Fatal]
  - Eosinophil count increased [Recovered/Resolved]
  - Cerebral haemorrhage [Fatal]
  - Pneumonia [Recovering/Resolving]

NARRATIVE: CASE EVENT DATE: 20180605
